FAERS Safety Report 12436727 (Version 6)
Quarter: 2017Q4

REPORT INFORMATION
  Report Type: Report from Study
  Country: CA (occurrence: CA)
  Receive Date: 20160606
  Receipt Date: 20171115
  Transmission Date: 20180320
  Serious: Yes (Other)
  Sender: FDA-Public Use
  Company Number: CA-UCBSA-2016020567

PATIENT
  Age: 48 Year
  Sex: Female
  Weight: 102 kg

DRUGS (6)
  1. PLAQUENIL [Concomitant]
     Active Substance: HYDROXYCHLOROQUINE SULFATE
     Indication: RHEUMATOID ARTHRITIS
     Dosage: 200 MG, 2X/DAY (BID)
     Route: 048
     Dates: start: 201201
  2. CERTOLIZUMAB PEGOL RA [Suspect]
     Active Substance: CERTOLIZUMAB PEGOL
     Indication: RHEUMATOID ARTHRITIS
     Dosage: 400 MG, EV 2 WEEKS(QOW)
     Route: 058
     Dates: start: 20120229
  3. CERTOLIZUMAB PEGOL RA [Suspect]
     Active Substance: CERTOLIZUMAB PEGOL
     Dosage: UNK
     Dates: start: 20170105, end: 201701
  4. CERTOLIZUMAB PEGOL RA [Suspect]
     Active Substance: CERTOLIZUMAB PEGOL
     Dosage: 200 MG, EV 2 WEEKS(QOW)
     Route: 058
     Dates: end: 201606
  5. CERTOLIZUMAB PEGOL RA [Suspect]
     Active Substance: CERTOLIZUMAB PEGOL
     Dosage: UNK
     Dates: start: 201607, end: 2016
  6. METHOTREXATE. [Concomitant]
     Active Substance: METHOTREXATE
     Indication: RHEUMATOID ARTHRITIS
     Dosage: 25 MG, WEEKLY (QW)
     Route: 058
     Dates: start: 201311

REACTIONS (7)
  - Rotator cuff syndrome [Not Recovered/Not Resolved]
  - Sinusitis [Recovered/Resolved]
  - Upper limb fracture [Recovering/Resolving]
  - Bronchitis [Recovered/Resolved]
  - Fall [Recovered/Resolved]
  - Melanocytic naevus [Recovered/Resolved]
  - Influenza [Recovered/Resolved]

NARRATIVE: CASE EVENT DATE: 2016
